FAERS Safety Report 10027866 (Version 1)
Quarter: 2014Q1

REPORT INFORMATION
  Report Type: Spontaneous
  Country: US (occurrence: US)
  Receive Date: 20140321
  Receipt Date: 20140321
  Transmission Date: 20141002
  Serious: Yes (Hospitalization)
  Sender: FDA-Public Use
  Company Number: US-JNJFOC-20140308134

PATIENT
  Age: 87 Year
  Sex: Male

DRUGS (6)
  1. DURAGESIC [Suspect]
     Indication: PRODUCT USED FOR UNKNOWN INDICATION
     Dosage: 12.5UG/HRX4
     Route: 062
  2. DURAGESIC [Suspect]
     Indication: PRODUCT USED FOR UNKNOWN INDICATION
     Route: 062
  3. NIVOLUMAB [Suspect]
     Indication: NON-SMALL CELL LUNG CANCER
     Route: 042
     Dates: start: 20130516
  4. LISINOPRIL [Suspect]
     Indication: HYPERTENSION
     Route: 065
     Dates: start: 20130529
  5. VANCOMYCIN [Concomitant]
     Route: 042
  6. CLINDAMYCIN [Concomitant]
     Route: 065

REACTIONS (2)
  - Hypotension [Recovered/Resolved]
  - Incorrect dose administered [Unknown]
